FAERS Safety Report 16207673 (Version 1)
Quarter: 2019Q2

REPORT INFORMATION
  Report Type: Spontaneous
  Country: US (occurrence: US)
  Receive Date: 20190417
  Receipt Date: 20190417
  Transmission Date: 20190711
  Serious: No
  Sender: FDA-Public Use
  Company Number: US-ABBVIE-18P-163-2392261-00

PATIENT

DRUGS (1)
  1. LUPRON DEPOT-PED [Suspect]
     Active Substance: LEUPROLIDE ACETATE
     Indication: PRECOCIOUS PUBERTY
     Route: 030
     Dates: start: 2017, end: 201806

REACTIONS (2)
  - Drug ineffective [Not Recovered/Not Resolved]
  - Epiphyses premature fusion [Not Recovered/Not Resolved]

NARRATIVE: CASE EVENT DATE: 2017
